FAERS Safety Report 4807114-2 (Version None)
Quarter: 2005Q4

REPORT INFORMATION
  Report Type: 
  Country: None (occurrence: None)
  Receive Date: 20051024
  Receipt Date: 20051006
  Transmission Date: 20060501
  Serious: Yes (Other)
  Sender: FDA-Public Use
  Company Number: ES-GLAXOSMITHKLINE-B0397018A

PATIENT
  Age: 2 Year
  Sex: Male

DRUGS (2)
  1. CEFUROXIME AXETIL [Suspect]
     Indication: TONSILLITIS
     Route: 048
     Dates: start: 20051006, end: 20051008
  2. APIRETAL [Concomitant]
     Indication: DRUG USE FOR UNKNOWN INDICATION

REACTIONS (7)
  - AGGRESSION [None]
  - ASTHENIA [None]
  - IRRITABILITY [None]
  - MALAISE [None]
  - PHARMACEUTICAL PRODUCT COMPLAINT [None]
  - RESTLESSNESS [None]
  - WRONG TECHNIQUE IN DRUG USAGE PROCESS [None]
